FAERS Safety Report 15753094 (Version 3)
Quarter: 2019Q1

REPORT INFORMATION
  Report Type: Spontaneous
  Country: CZ (occurrence: CZ)
  Receive Date: 20181221
  Receipt Date: 20190107
  Transmission Date: 20190417
  Serious: Yes (Death, Hospitalization, Other)
  Sender: FDA-Public Use
  Company Number: CZ-B.I. PHARMACEUTICALS,INC./RIDGEFIELD-2018-BI-060966

PATIENT
  Age: 46 Year
  Sex: Female

DRUGS (2)
  1. PRADAXA [Suspect]
     Active Substance: DABIGATRAN ETEXILATE MESYLATE
     Indication: DEEP VEIN THROMBOSIS
     Dosage: THERAPY START DATE: 16-JUN-2017
     Route: 065
  2. PRADAXA [Suspect]
     Active Substance: DABIGATRAN ETEXILATE MESYLATE
     Indication: PULMONARY EMBOLISM

REACTIONS (10)
  - Pulmonary embolism [Unknown]
  - Dyspnoea [Fatal]
  - Chest pain [Unknown]
  - Pneumothorax [Unknown]
  - Neoplasm progression [Fatal]
  - Lymphadenopathy mediastinal [Unknown]
  - Hilar lymphadenopathy [Unknown]
  - Cor pulmonale [Unknown]
  - Lung neoplasm [Fatal]
  - Respiratory failure [Unknown]

NARRATIVE: CASE EVENT DATE: 2017
